FAERS Safety Report 8990753 (Version 1)
Quarter: 2012Q4

REPORT INFORMATION
  Report Type: Spontaneous
  Country: US (occurrence: None)
  Receive Date: 20121226
  Receipt Date: 20121226
  Transmission Date: 20130627
  Serious: Yes (Life-Threatening, Hospitalization, Other)
  Sender: FDA-Public Use
  Company Number: None

PATIENT
  Sex: Male

DRUGS (3)
  1. ERTAPENEM [Suspect]
     Dosage: ERTAPENEM 0.5 GRAMS IV Q 24 HOURS
     Route: 042
  2. LORAZEPAM [Concomitant]
  3. LEVETIRACETAM [Concomitant]

REACTIONS (3)
  - Convulsion [None]
  - Dysarthria [None]
  - Mental status changes [None]
